FAERS Safety Report 8767012 (Version 2)
Quarter: 2012Q4

REPORT INFORMATION
  Report Type: 
  Country: US (occurrence: US)
  Receive Date: 20120904
  Receipt Date: 20120920
  Transmission Date: 20130627
  Serious: Yes (Other)
  Sender: FDA-Public Use
  Company Number: US-PFIZER INC-2012213162

PATIENT
  Sex: Male

DRUGS (1)
  1. LIPITOR [Suspect]
     Dosage: 10 mg, UNK

REACTIONS (9)
  - Amnesia [Unknown]
  - Arthritis [Unknown]
  - Hypertension [Unknown]
  - Psychomotor hyperactivity [Unknown]
  - Coordination abnormal [Unknown]
  - Anxiety [Unknown]
  - Heart rate increased [Unknown]
  - Myalgia [Unknown]
  - Feeling jittery [Unknown]
